FAERS Safety Report 9966388 (Version 1)
Quarter: 2014Q1

REPORT INFORMATION
  Report Type: Report from Study
  Country: US (occurrence: US)
  Receive Date: 20140305
  Receipt Date: 20140305
  Transmission Date: 20141002
  Serious: No
  Sender: FDA-Public Use
  Company Number: US-ABBVIE-13P-163-1121479-00

PATIENT
  Age: 23 Year
  Sex: Female
  Weight: 63.56 kg

DRUGS (5)
  1. HUMIRA [Suspect]
     Indication: CROHN^S DISEASE
     Dates: start: 200604, end: 2007
  2. HUMIRA [Suspect]
     Dates: start: 2007
  3. UNKNOWN ACID REFLEX DRUG [Concomitant]
     Indication: GASTROOESOPHAGEAL REFLUX DISEASE
  4. HYCOSAMINE [Concomitant]
     Indication: CROHN^S DISEASE
  5. TRAMADOL [Concomitant]
     Indication: CROHN^S DISEASE

REACTIONS (3)
  - Chest discomfort [Not Recovered/Not Resolved]
  - Dyspnoea [Not Recovered/Not Resolved]
  - Drug ineffective [Recovered/Resolved]
